FAERS Safety Report 5257453-9 (Version None)
Quarter: 2007Q1

REPORT INFORMATION
  Report Type: 
  Country: None (occurrence: None)
  Receive Date: 20070307
  Receipt Date: 20060808
  Transmission Date: 20070707
  Serious: No
  Sender: FDA-Public Use
  Company Number: US-GLAXOSMITHKLINE-A0615781A

PATIENT
  Age: 64 Year
  Sex: Female

DRUGS (6)
  1. REQUIP [Suspect]
     Indication: RESTLESS LEGS SYNDROME
     Dosage: 2MG AT NIGHT
     Route: 048
  2. GLYBURIDE [Concomitant]
  3. PREVACID [Concomitant]
  4. LIPITOR [Concomitant]
  5. HYDROCHLOROTHIAZIDE [Concomitant]
  6. CAFFEINE PILLS [Concomitant]

REACTIONS (1)
  - DRUG INEFFECTIVE [None]
